FAERS Safety Report 21266986 (Version 1)
Quarter: 2022Q3

REPORT INFORMATION
  Report Type: Spontaneous
  Country: US (occurrence: None)
  Receive Date: 20220826
  Receipt Date: 20220826
  Transmission Date: 20221027
  Serious: Yes (Hospitalization)
  Sender: FDA-Public Use
  Company Number: None

PATIENT
  Sex: Female

DRUGS (1)
  1. REMICADE [Suspect]
     Active Substance: INFLIXIMAB
     Indication: Crohn^s disease
     Dosage: FREQUENCY : MONTHLY;?
     Route: 042
     Dates: start: 201911

REACTIONS (3)
  - Nephrolithiasis [None]
  - Sepsis [None]
  - Proteus infection [None]
